FAERS Safety Report 9788662 (Version 2)
Quarter: 2013Q4

REPORT INFORMATION
  Report Type: Report from Study
  Country: KE (occurrence: KE)
  Receive Date: 20131230
  Receipt Date: 20131230
  Transmission Date: 20140711
  Serious: Yes (Hospitalization, Other)
  Sender: FDA-Public Use
  Company Number: KE-GILEAD-2013-0073374

PATIENT
  Age: 30 Year
  Sex: Female

DRUGS (2)
  1. EMTRICITABINE/TENOFOVIR DISOPROXIL FUMARATE [Suspect]
     Indication: PROPHYLAXIS AGAINST HIV INFECTION
     Dosage: UNK
     Dates: start: 20090617, end: 20120208
  2. COTRIMOXAZOLE [Concomitant]

REACTIONS (4)
  - Drug ineffective [Recovered/Resolved]
  - HIV test positive [Not Recovered/Not Resolved]
  - Malaria [Recovered/Resolved]
  - Pregnancy [Unknown]
